FAERS Safety Report 23954412 (Version 2)
Quarter: 2024Q3

REPORT INFORMATION
  Report Type: Report from Study
  Country: US (occurrence: US)
  Receive Date: 20240610
  Receipt Date: 20240808
  Transmission Date: 20241016
  Serious: Yes (Hospitalization)
  Sender: ROCHE
  Company Number: US-ROCHE-3409646

PATIENT
  Age: 72 Year
  Sex: Female

DRUGS (26)
  1. CELLCEPT [Suspect]
     Active Substance: MYCOPHENOLATE MOFETIL
     Indication: Interstitial lung disease
     Route: 065
  2. NINTEDANIB ESYLATE [Suspect]
     Active Substance: NINTEDANIB ESYLATE
     Indication: Systemic sclerosis pulmonary
     Dosage: 150MG TAKEN IN EVERY 12 HOURS
     Route: 048
     Dates: start: 20230629
  3. NINTEDANIB ESYLATE [Suspect]
     Active Substance: NINTEDANIB ESYLATE
     Indication: Interstitial lung disease
  4. NINTEDANIB ESYLATE [Suspect]
     Active Substance: NINTEDANIB ESYLATE
     Indication: Scleroderma
  5. AMOXICILLIN [Concomitant]
     Active Substance: AMOXICILLIN
  6. ATORVASTATIN [Concomitant]
     Active Substance: ATORVASTATIN
  7. ATROVENT HFA [Concomitant]
     Active Substance: IPRATROPIUM BROMIDE
  8. CALCIUM [Concomitant]
     Active Substance: CALCIUM
  9. CULTURELLE [Concomitant]
     Active Substance: LACTOBACILLUS RHAMNOSUS
  10. CYMBALTA [Concomitant]
     Active Substance: DULOXETINE HYDROCHLORIDE
  11. DILTIAZEM [Concomitant]
     Active Substance: DILTIAZEM
  12. FAMOTIDINE [Concomitant]
     Active Substance: FAMOTIDINE
  13. HYDROCODONE [Concomitant]
     Active Substance: HYDROCODONE
  14. IMODIUM [Concomitant]
     Active Substance: LOPERAMIDE HYDROCHLORIDE
  15. LASIX [Concomitant]
     Active Substance: FUROSEMIDE
  16. LEVOTHYROXINE [Concomitant]
     Active Substance: LEVOTHYROXINE\LEVOTHYROXINE SODIUM
  17. LYRICA [Concomitant]
     Active Substance: PREGABALIN
  18. MACRODANTIN [Concomitant]
     Active Substance: NITROFURANTOIN
  19. MAGNESIUM [Concomitant]
     Active Substance: MAGNESIUM
  20. METOPROLOL [Concomitant]
     Active Substance: METOPROLOL
  21. MIRAPEX [Concomitant]
     Active Substance: PRAMIPEXOLE DIHYDROCHLORIDE
  22. PROLIA [Concomitant]
     Active Substance: DENOSUMAB
     Dosage: SOS 60MG/ML
  23. OMEPRAZOLE [Concomitant]
     Active Substance: OMEPRAZOLE
  24. TRAZODONE [Concomitant]
     Active Substance: TRAZODONE HYDROCHLORIDE
  25. VITAMIN D3 [Concomitant]
     Active Substance: CHOLECALCIFEROL
  26. PIROXICAM [Concomitant]
     Active Substance: PIROXICAM
     Dosage: DRUG WAS DISCONTUNUED

REACTIONS (33)
  - Diarrhoea [Not Recovered/Not Resolved]
  - Pneumonia [Unknown]
  - Headache [Not Recovered/Not Resolved]
  - Muscle spasms [Not Recovered/Not Resolved]
  - Cellulitis [Unknown]
  - Off label use [Unknown]
  - Hyperaesthesia teeth [Not Recovered/Not Resolved]
  - Asthenia [Unknown]
  - Croup infectious [Unknown]
  - Cough [Not Recovered/Not Resolved]
  - Sinus disorder [Unknown]
  - Alopecia [Not Recovered/Not Resolved]
  - Oral pain [Unknown]
  - Skin discolouration [Unknown]
  - Weight decreased [Not Recovered/Not Resolved]
  - Dyspnoea exertional [Unknown]
  - Depression [Unknown]
  - Cardiac disorder [Unknown]
  - Arthropod bite [Unknown]
  - Skin atrophy [Unknown]
  - Skin haemorrhage [Unknown]
  - Contusion [Not Recovered/Not Resolved]
  - Oral candidiasis [Not Recovered/Not Resolved]
  - Weight increased [Unknown]
  - Depressed mood [Unknown]
  - Fatigue [Not Recovered/Not Resolved]
  - Brain fog [Not Recovered/Not Resolved]
  - Hyperphagia [Unknown]
  - Hyperaesthesia teeth [Not Recovered/Not Resolved]
  - Dyspnoea [Unknown]
  - Product dose omission issue [Unknown]
  - Joint swelling [Unknown]
  - Decreased appetite [Unknown]

NARRATIVE: CASE EVENT DATE: 20230801
